FAERS Safety Report 4378102-8 (Version None)
Quarter: 2004Q2

REPORT INFORMATION
  Report Type: 
  Country: None (occurrence: None)
  Receive Date: 20040616
  Receipt Date: 20040608
  Transmission Date: 20050107
  Serious: Yes (Death)
  Sender: FDA-Public Use
  Company Number: PHBS2004GB07632

PATIENT
  Age: 76 Year
  Sex: Male

DRUGS (3)
  1. CARBAMAZEPINE [Suspect]
     Indication: NEPHROGENIC DIABETES INSIPIDUS
     Route: 042
  2. AMILORIDE [Suspect]
     Dosage: 5 MG/D
  3. BENDROFLUMETHIAZIDE [Suspect]
     Dosage: 2.5 MG/D

REACTIONS (1)
  - GASTROINTESTINAL HAEMORRHAGE [None]
